FAERS Safety Report 4548130-8 (Version None)
Quarter: 2004Q4

REPORT INFORMATION
  Report Type: 
  Country: None (occurrence: None)
  Receive Date: 20041220
  Receipt Date: 20040924
  Transmission Date: 20050328
  Serious: Yes (Other)
  Sender: FDA-Public Use
  Company Number: 2004074175

PATIENT
  Age: 51 Year
  Sex: Female

DRUGS (2)
  1. VFEND [Suspect]
     Indication: BREAST ABSCESS
     Dosage: 400 MG 9200 MG, 2 IN 1 D),
     Dates: start: 20040915
  2. LEVOFLOXACIN [Concomitant]

REACTIONS (2)
  - ARTHRALGIA [None]
  - BONE PAIN [None]
